FAERS Safety Report 24703093 (Version 5)
Quarter: 2025Q1

REPORT INFORMATION
  Report Type: Spontaneous
  Country: CO (occurrence: CO)
  Receive Date: 20241205
  Receipt Date: 20250213
  Transmission Date: 20250408
  Serious: No
  Sender: PFIZER
  Company Number: CO-PFIZER INC-PV202400154878

PATIENT
  Age: 11 Year
  Sex: Female
  Weight: 40 kg

DRUGS (1)
  1. GENOTROPIN [Suspect]
     Active Substance: SOMATROPIN
     Indication: Growth hormone deficiency
     Dosage: 1.6 MG, DAILY
     Route: 058
     Dates: start: 202402

REACTIONS (1)
  - Incorrect dose administered [Unknown]
